FAERS Safety Report 22518612 (Version 2)
Quarter: 2025Q3

REPORT INFORMATION
  Report Type: Spontaneous
  Country: US (occurrence: US)
  Receive Date: 20230605
  Receipt Date: 20250709
  Transmission Date: 20251020
  Serious: No
  Sender: AMGEN
  Company Number: US-AMGEN-USASP2023095521

PATIENT
  Age: 66 Year
  Sex: Male

DRUGS (1)
  1. TAVNEOS [Suspect]
     Active Substance: AVACOPAN
     Indication: Granulomatosis with polyangiitis
     Dosage: 30 MILLIGRAM, BID
     Route: 065
     Dates: start: 20220921

REACTIONS (1)
  - Hypersensitivity [Recovering/Resolving]
